FAERS Safety Report 4755485-8 (Version None)
Quarter: 2005Q3

REPORT INFORMATION
  Report Type: 
  Country: None (occurrence: None)
  Receive Date: 20050830
  Receipt Date: 20050823
  Transmission Date: 20060218
  Serious: Yes (Hospitalization)
  Sender: FDA-Public Use
  Company Number: US-BRISTOL-MYERS SQUIBB COMPANY-13087507

PATIENT
  Age: 66 Year
  Sex: Female

DRUGS (4)
  1. TEQUIN [Suspect]
     Indication: DIVERTICULITIS
     Route: 048
     Dates: start: 20050805, end: 20050806
  2. BLINDED: CLOPIDOGREL BISULFATE [Suspect]
  3. BLINDED: AGGRENOX [Suspect]
  4. BLINDED: MICARDIS [Suspect]

REACTIONS (3)
  - DIZZINESS [None]
  - HYPOGLYCAEMIA [None]
  - TREMOR [None]
